FAERS Safety Report 14467217 (Version 1)
Quarter: 2018Q1

REPORT INFORMATION
  Report Type: Spontaneous
  Country: GB (occurrence: GB)
  Receive Date: 20180131
  Receipt Date: 20180131
  Transmission Date: 20180509
  Serious: Yes (Other)
  Sender: FDA-Public Use
  Company Number: PHHY2017GB200152

PATIENT
  Age: 78 Year
  Sex: Female

DRUGS (1)
  1. IMATINIB [Suspect]
     Active Substance: IMATINIB
     Indication: GASTROINTESTINAL STROMAL TUMOUR
     Dosage: 400 MG
     Route: 065

REACTIONS (6)
  - Scar [Unknown]
  - Skin plaque [Recovering/Resolving]
  - Skin necrosis [Recovering/Resolving]
  - Pain [Recovering/Resolving]
  - Skin ulcer [Recovering/Resolving]
  - Pyoderma gangrenosum [Recovering/Resolving]
